FAERS Safety Report 25116628 (Version 1)
Quarter: 2025Q1

REPORT INFORMATION
  Report Type: Spontaneous
  Country: US (occurrence: US)
  Receive Date: 20250325
  Receipt Date: 20250325
  Transmission Date: 20250409
  Serious: Yes (Other)
  Sender: STRIDES
  Company Number: US-STRIDES ARCOLAB LIMITED-2025SP000313

PATIENT
  Sex: Female

DRUGS (10)
  1. METHOTREXATE [Suspect]
     Active Substance: METHOTREXATE
     Indication: Chronic cutaneous lupus erythematosus
     Route: 065
  2. MYCOPHENOLATE MOFETIL [Suspect]
     Active Substance: MYCOPHENOLATE MOFETIL
     Indication: Chronic cutaneous lupus erythematosus
     Route: 065
  3. AZATHIOPRINE [Suspect]
     Active Substance: AZATHIOPRINE
     Indication: Chronic cutaneous lupus erythematosus
     Route: 065
  4. HYDROXYCHLOROQUINE [Suspect]
     Active Substance: HYDROXYCHLOROQUINE
     Indication: Chronic cutaneous lupus erythematosus
     Route: 065
  5. LEFLUNOMIDE [Suspect]
     Active Substance: LEFLUNOMIDE
     Indication: Chronic cutaneous lupus erythematosus
     Route: 065
  6. THALIDOMIDE [Suspect]
     Active Substance: THALIDOMIDE
     Indication: Chronic cutaneous lupus erythematosus
     Route: 065
  7. CYCLOPHOSPHAMIDE [Suspect]
     Active Substance: CYCLOPHOSPHAMIDE
     Indication: Chronic cutaneous lupus erythematosus
     Route: 065
  8. RITUXIMAB [Suspect]
     Active Substance: RITUXIMAB
     Indication: Chronic cutaneous lupus erythematosus
     Route: 065
  9. BELIMUMAB [Suspect]
     Active Substance: BELIMUMAB
     Indication: Chronic cutaneous lupus erythematosus
     Route: 065
  10. IMMUNE GLOBULIN NOS [Suspect]
     Active Substance: IMMUNE GLOBULIN NOS
     Indication: Chronic cutaneous lupus erythematosus
     Route: 042

REACTIONS (1)
  - Drug ineffective for unapproved indication [Unknown]
